FAERS Safety Report 22672765 (Version 2)
Quarter: 2024Q1

REPORT INFORMATION
  Report Type: Spontaneous
  Country: FR (occurrence: FR)
  Receive Date: 20230705
  Receipt Date: 20240119
  Transmission Date: 20240410
  Serious: Yes (Hospitalization)
  Sender: FDA-Public Use
  Company Number: None

PATIENT
  Age: 59 Year
  Sex: Male

DRUGS (4)
  1. EUPANTOL [Suspect]
     Active Substance: PANTOPRAZOLE SODIUM
     Dosage: 40 MILLIGRAM, QD
     Route: 042
     Dates: start: 20230609, end: 20230613
  2. INIPOMP [Suspect]
     Active Substance: PANTOPRAZOLE SODIUM
     Indication: Duodenal ulcer
     Dosage: 8 MILLIGRAM, Q1HR
     Route: 042
     Dates: start: 20230607, end: 20230609
  3. IOMERON [Suspect]
     Active Substance: IOMEPROL
     Indication: Imaging procedure
     Dosage: UNK
     Route: 042
     Dates: start: 20230607, end: 20230607
  4. VISIPAQUE [Suspect]
     Active Substance: IODIXANOL
     Indication: Imaging procedure
     Dosage: UNK
     Route: 042
     Dates: start: 20230608, end: 20230608

REACTIONS (1)
  - Rash maculo-papular [Unknown]

NARRATIVE: CASE EVENT DATE: 20230613
